FAERS Safety Report 15642196 (Version 1)
Quarter: 2018Q4

REPORT INFORMATION
  Report Type: Spontaneous
  Country: US (occurrence: US)
  Receive Date: 20181121
  Receipt Date: 20181121
  Transmission Date: 20190205
  Serious: Yes (Hospitalization)
  Sender: FDA-Public Use
  Company Number: US-ELI_LILLY_AND_COMPANY-US201811005296

PATIENT
  Age: 70 Year
  Sex: Female

DRUGS (1)
  1. FORTEO [Suspect]
     Active Substance: TERIPARATIDE
     Indication: OSTEOPOROSIS
     Dosage: UNK, UNKNOWN
     Route: 058
     Dates: start: 20181009

REACTIONS (4)
  - Abdominal distension [Not Recovered/Not Resolved]
  - Hydronephrosis [Recovering/Resolving]
  - Nephrolithiasis [Recovering/Resolving]
  - Pyelonephritis [Recovering/Resolving]
